FAERS Safety Report 18917664 (Version 1)
Quarter: 2021Q1

REPORT INFORMATION
  Report Type: Report from Study
  Country: FR (occurrence: FR)
  Receive Date: 20210219
  Receipt Date: 20210219
  Transmission Date: 20210420
  Serious: Yes (Hospitalization)
  Sender: FDA-Public Use
  Company Number: FR-ROCHE-2770732

PATIENT
  Age: 69 Year
  Sex: Female

DRUGS (1)
  1. ATEZOLIZUMAB. [Suspect]
     Active Substance: ATEZOLIZUMAB
     Indication: SARCOMA METASTATIC
     Dosage: LAST CYCLE OF TREATMENT (C5) RECEIVED AS FOLLOWS:?ATEZOLIZUMAB IV 1200 MG ON 26/JAN/2021 FOR CUMULAT
     Route: 042
     Dates: start: 20201103

REACTIONS (1)
  - Femoral neck fracture [Not Recovered/Not Resolved]

NARRATIVE: CASE EVENT DATE: 20210210
